FAERS Safety Report 12717637 (Version 3)
Quarter: 2017Q1

REPORT INFORMATION
  Report Type: Report from Study
  Country: JP (occurrence: JP)
  Receive Date: 20160906
  Receipt Date: 20170131
  Transmission Date: 20170428
  Serious: Yes (Other)
  Sender: FDA-Public Use
  Company Number: JP-SHIRE-JP201611541AA

PATIENT
  Age: 70 Year
  Sex: Female
  Weight: 45.7 kg

DRUGS (5)
  1. 422 (ANAGRELIDE) [Suspect]
     Active Substance: ANAGRELIDE
     Dosage: 0.5 MG/DAY
     Route: 048
     Dates: start: 20150903
  2. CYMERIN [Suspect]
     Active Substance: RANIMUSTINE
     Indication: ESSENTIAL THROMBOCYTHAEMIA
     Dosage: 100 MG/DAY
     Route: 065
     Dates: start: 20150129, end: 20150129
  3. 422 (ANAGRELIDE) [Suspect]
     Active Substance: ANAGRELIDE
     Indication: ESSENTIAL THROMBOCYTHAEMIA
     Dosage: 1 MG/DAY
     Route: 048
     Dates: start: 20150212, end: 20150225
  4. CYMERIN [Suspect]
     Active Substance: RANIMUSTINE
     Dosage: UNK, UNKNOWN
     Route: 065
     Dates: start: 20150212, end: 20150212
  5. 422 (ANAGRELIDE) [Suspect]
     Active Substance: ANAGRELIDE
     Dosage: 1 MG/DAY
     Route: 048
     Dates: start: 20150312, end: 20150902

REACTIONS (3)
  - Pancytopenia [Recovered/Resolved]
  - Diarrhoea [Recovered/Resolved]
  - Bronchitis [Not Recovered/Not Resolved]

NARRATIVE: CASE EVENT DATE: 20150226
